FAERS Safety Report 7620349-9 (Version None)
Quarter: 2011Q3

REPORT INFORMATION
  Report Type: 
  Country: None (occurrence: None)
  Receive Date: 20110718
  Receipt Date: 20110718
  Transmission Date: 20111222
  Serious: Yes (Hospitalization)
  Sender: FDA-Public Use
  Company Number: None

PATIENT
  Age: 84 Year
  Sex: Male

DRUGS (1)
  1. COUMADIN [Suspect]
     Route: 048

REACTIONS (8)
  - INTERNATIONAL NORMALISED RATIO INCREASED [None]
  - SPEECH DISORDER [None]
  - ECCHYMOSIS [None]
  - MEMORY IMPAIRMENT [None]
  - FALL [None]
  - OEDEMA [None]
  - ASTHENIA [None]
  - MUSCLE HAEMORRHAGE [None]
